FAERS Safety Report 17629563 (Version 5)
Quarter: 2021Q1

REPORT INFORMATION
  Report Type: Spontaneous
  Country: US (occurrence: US)
  Receive Date: 20200406
  Receipt Date: 20210111
  Transmission Date: 20210419
  Serious: No
  Sender: FDA-Public Use
  Company Number: US-PFIZER INC-2020137695

PATIENT
  Age: 40 Year
  Sex: Female

DRUGS (4)
  1. IMURAN [Concomitant]
     Active Substance: AZATHIOPRINE
     Dosage: UNK
  2. XELJANZ [Suspect]
     Active Substance: TOFACITINIB CITRATE
     Dosage: 5 MG, 2X/DAY
     Route: 048
  3. APRISO [Concomitant]
     Active Substance: MESALAMINE
     Dosage: UNK
  4. XELJANZ [Suspect]
     Active Substance: TOFACITINIB CITRATE
     Indication: COLITIS ULCERATIVE
     Dosage: 10 MG, 2X/DAY (BID?TWICE A DAY)
     Route: 048
     Dates: start: 20200326

REACTIONS (13)
  - Nausea [Unknown]
  - Dyspepsia [Unknown]
  - Blood pressure increased [Unknown]
  - Off label use [Unknown]
  - Photosensitivity reaction [Unknown]
  - Product use issue [Unknown]
  - Decreased appetite [Unknown]
  - Depression [Unknown]
  - COVID-19 [Unknown]
  - Product dose omission in error [Unknown]
  - Headache [Unknown]
  - Sunburn [Unknown]
  - Condition aggravated [Unknown]

NARRATIVE: CASE EVENT DATE: 2020
